FAERS Safety Report 5687027-7 (Version None)
Quarter: 2008Q1

REPORT INFORMATION
  Report Type: 
  Country: None (occurrence: None)
  Receive Date: 20080328
  Receipt Date: 20070507
  Transmission Date: 20080703
  Serious: No
  Sender: FDA-Public Use
  Company Number: US-BAYER-US-2007-016259

PATIENT
  Age: 43 Year
  Sex: Female
  Weight: 136 kg

DRUGS (5)
  1. MIRENA [Suspect]
     Indication: METRORRHAGIA
     Route: 015
     Dates: start: 20070201
  2. LISINOPRIL [Concomitant]
  3. CLARITIN [Concomitant]
  4. OTHER HORMONES [Concomitant]
     Indication: THYROID DISORDER
  5. OTHER VITAMIN PRODUCTS, COMBINATIONS [Concomitant]

REACTIONS (1)
  - TINNITUS [None]
